FAERS Safety Report 16997213 (Version 1)
Quarter: 2019Q4

REPORT INFORMATION
  Report Type: Spontaneous
  Country: US (occurrence: US)
  Receive Date: 20191028
  Receipt Date: 20191028
  Transmission Date: 20200122
  Serious: Yes (Hospitalization)
  Sender: FDA-Public Use
  Company Number: None

PATIENT
  Age: 57 Year
  Sex: Female

DRUGS (2)
  1. VEMLIDY [Suspect]
     Active Substance: TENOFOVIR ALAFENAMIDE FUMARATE
     Dosage: ?          OTHER DOSE:VEMLIDY;?
     Route: 048
  2. ASPIRIN CHW 81 MG [Concomitant]

REACTIONS (1)
  - Renal disorder [None]

NARRATIVE: CASE EVENT DATE: 20191017
